FAERS Safety Report 6037911-X (Version None)
Quarter: 2009Q1

REPORT INFORMATION
  Report Type: 
  Country: None (occurrence: None)
  Receive Date: 20090113
  Receipt Date: 20090113
  Transmission Date: 20090719
  Serious: Yes (Hospitalization)
  Sender: FDA-Public Use
  Company Number: None

PATIENT
  Age: 76 Year
  Sex: Male

DRUGS (1)
  1. WARFARIN SODIUM [Suspect]
     Indication: ATRIAL FIBRILLATION
     Dosage: 10 MG EVERY DAY PO
     Route: 048
     Dates: start: 20030724

REACTIONS (5)
  - ECCHYMOSIS [None]
  - HAEMATOMA [None]
  - INTERNATIONAL NORMALISED RATIO ABNORMAL [None]
  - PAIN [None]
  - THERAPEUTIC AGENT TOXICITY [None]
